FAERS Safety Report 5276203-3 (Version None)
Quarter: 2007Q1

REPORT INFORMATION
  Report Type: 
  Country: None (occurrence: None)
  Receive Date: 20070326
  Receipt Date: 20070323
  Transmission Date: 20070707
  Serious: Yes (Other)
  Sender: FDA-Public Use
  Company Number: GB-ROXANE LABORATORIES, INC-2007-DE-01778GD

PATIENT
  Age: 78 Year
  Sex: Female

DRUGS (11)
  1. MORPHINE [Suspect]
  2. FENTANYL [Suspect]
     Indication: INDUCTION OF ANAESTHESIA
  3. MIDAZOLAM HCL [Concomitant]
     Indication: ANAESTHETIC PREMEDICATION
  4. PROPOFOL [Concomitant]
     Indication: INDUCTION OF ANAESTHESIA
  5. ROCURONIUM BROMIDE [Concomitant]
     Indication: INTUBATION
  6. SEVOFLURANE [Concomitant]
     Indication: GENERAL ANAESTHESIA
     Route: 055
  7. CYCLIZINE [Concomitant]
  8. HARTMANN'S SOLUTION [Concomitant]
  9. SUCCINYLATED GELATIN [Concomitant]
  10. ATENOLOL [Concomitant]
  11. SIMVASTATIN [Concomitant]

REACTIONS (3)
  - DELAYED RECOVERY FROM ANAESTHESIA [None]
  - MIOSIS [None]
  - RESPIRATORY DEPRESSION [None]
